FAERS Safety Report 5264769-9 (Version None)
Quarter: 2007Q1

REPORT INFORMATION
  Report Type: 
  Country: None (occurrence: None)
  Receive Date: 20070313
  Receipt Date: 20070228
  Transmission Date: 20070707
  Serious: Yes (Disabling)
  Sender: FDA-Public Use
  Company Number: PHNR2007AU00785

PATIENT
  Age: 79 Year
  Sex: Male

DRUGS (2)
  1. VOLTAREN [Suspect]
  2. FOSAMAX [Concomitant]
     Indication: BONE DISORDER
     Dosage: 70MG WEEKLY
     Route: 048

REACTIONS (4)
  - BONE SCAN ABNORMAL [None]
  - FALL [None]
  - IMPAIRED HEALING [None]
  - TOOTH EXTRACTION [None]
